FAERS Safety Report 25449934 (Version 1)
Quarter: 2025Q2

REPORT INFORMATION
  Report Type: Spontaneous
  Country: PH (occurrence: PH)
  Receive Date: 20250618
  Receipt Date: 20250618
  Transmission Date: 20250716
  Serious: Yes (Death)
  Sender: NOVARTIS
  Company Number: PH-002147023-NVSC2025PH096010

PATIENT
  Sex: Male

DRUGS (1)
  1. GLIVEC [Suspect]
     Active Substance: IMATINIB MESYLATE
     Indication: Chronic myeloid leukaemia
     Route: 065

REACTIONS (6)
  - Acute respiratory failure [Fatal]
  - Pulmonary embolism [Fatal]
  - Upper gastrointestinal haemorrhage [Fatal]
  - Chronic myeloid leukaemia [Fatal]
  - Acute kidney injury [Fatal]
  - Peptic ulcer haemorrhage [Fatal]
